FAERS Safety Report 7170282 (Version 2)
Quarter: 2020Q3

REPORT INFORMATION
  Report Type: Spontaneous
  Country: DE (occurrence: DE)
  Receive Date: 20091109
  Receipt Date: 20091224
  Transmission Date: 20201105
  Serious: Yes (Other)
  Sender: FDA-Public Use
  Company Number: DE-ROCHE-666432

PATIENT
  Age: 46 Year
  Sex: Female
  Weight: 50 kg

DRUGS (3)
  1. DIPYRONE [Concomitant]
     Active Substance: DIPYRONE
     Indication: ANALGESIC THERAPY
     Dosage: 2?4 TIMES DAILY
     Route: 048
     Dates: start: 20090705
  2. IBANDRONIC ACID. [Suspect]
     Active Substance: IBANDRONIC ACID
     Dosage: TAKEN ONCE
     Route: 042
     Dates: start: 20090719, end: 20090719
  3. ARCOXIA [Concomitant]
     Active Substance: ETORICOXIB
     Indication: ANALGESIC THERAPY
     Route: 048
     Dates: start: 20090701, end: 20090818

REACTIONS (3)
  - Renal tubular necrosis [Unknown]
  - Renal failure [Recovering/Resolving]
  - Hypercalcaemia [Recovering/Resolving]

NARRATIVE: CASE EVENT DATE: 20090730
